FAERS Safety Report 5536254-8 (Version None)
Quarter: 2007Q4

REPORT INFORMATION
  Report Type: 
  Country: None (occurrence: None)
  Receive Date: 20071206
  Receipt Date: 20071205
  Transmission Date: 20080405
  Serious: Yes (Disabling)
  Sender: FDA-Public Use
  Company Number: US-BOEHRINGER INGELHEIM PHARMACEUTICALS, INC.-2007-BP-23212BP

PATIENT
  Age: 59 Year
  Sex: Male

DRUGS (12)
  1. SPIRIVA [Suspect]
     Indication: CHRONIC OBSTRUCTIVE PULMONARY DISEASE
     Route: 055
     Dates: start: 20070101
  2. SPIRIVA [Suspect]
     Indication: EMPHYSEMA
  3. FORADIL [Concomitant]
  4. PREDNISONE TAB [Concomitant]
  5. ALBUTEROL [Concomitant]
     Indication: EMPHYSEMA
  6. XANAX [Concomitant]
  7. WELLBUTRIN [Concomitant]
  8. NEURONTIN [Concomitant]
  9. NEXIUM [Concomitant]
  10. VICODIN [Concomitant]
  11. RANITIDINE HCL [Concomitant]
  12. OXYGEN [Concomitant]
     Indication: EMPHYSEMA

REACTIONS (3)
  - BLINDNESS [None]
  - CATARACT [None]
  - VISUAL ACUITY REDUCED [None]
